FAERS Safety Report 6238244-9 (Version None)
Quarter: 2009Q2

REPORT INFORMATION
  Report Type: 
  Country: None (occurrence: None)
  Receive Date: 20090617
  Receipt Date: 20090617
  Transmission Date: 20091009
  Serious: No
  Sender: FDA-Public Use
  Company Number: None

PATIENT
  Age: 47 Year
  Sex: Male

DRUGS (1)
  1. CREST PRO-HEALTH [Suspect]
     Dosage: 2-3 WEEKS ONCE A DAY
     Route: 048
     Dates: start: 20090518, end: 20090607

REACTIONS (3)
  - APHTHOUS STOMATITIS [None]
  - ORAL MUCOSAL EXFOLIATION [None]
  - PRODUCT QUALITY ISSUE [None]
